FAERS Safety Report 7462916-1 (Version None)
Quarter: 2011Q2

REPORT INFORMATION
  Report Type: 
  Country: None (occurrence: None)
  Receive Date: 20110506
  Receipt Date: 20110421
  Transmission Date: 20111010
  Serious: Yes (Hospitalization, Other)
  Sender: FDA-Public Use
  Company Number: US-BAYER-2010-004375

PATIENT
  Age: 27 Year
  Sex: Female
  Weight: 146.3 kg

DRUGS (38)
  1. DARVOCET [Concomitant]
  2. PENICILLIN [Concomitant]
     Dosage: UNK
     Dates: start: 20060714, end: 20060718
  3. DESOXIMETASONE [Concomitant]
     Dosage: UNK
     Dates: start: 20090216
  4. FEMCOM [Concomitant]
     Dosage: UNK
     Dates: start: 20090612, end: 20090707
  5. FLUCONAZOLE [Concomitant]
     Dosage: UNK
     Dates: start: 20060721
  6. METFORMIN [Concomitant]
  7. COUGH AND COLD PREPARATIONS [Concomitant]
  8. DEMEROL [Concomitant]
  9. KEFZOL [Concomitant]
  10. LORTAB [Concomitant]
  11. VERSED [Concomitant]
  12. NITROFURANTOIN [Concomitant]
     Dosage: 100 MG, QD
  13. FERROUS SULFATE TAB [Concomitant]
     Dosage: UNK
     Dates: start: 20090430, end: 20090530
  14. AMOXICILLIN [Concomitant]
     Dosage: UNK
     Dates: start: 20091106, end: 20091115
  15. AMOXICILLIN [Concomitant]
     Dosage: UNK
     Dates: start: 20100111
  16. MAXALT [Concomitant]
  17. ROBINUL [Concomitant]
  18. DROSPIRENONE AND ETHINYL ESTRADIOL [Suspect]
     Indication: MENSTRUATION IRREGULAR
     Dosage: UNK
     Dates: start: 20090707, end: 20100201
  19. PRENATAL PLUS IRON [Concomitant]
  20. PROCHLORPERAZINE TAB [Concomitant]
  21. ZOFRAN [Concomitant]
  22. KLOR-CON [Concomitant]
     Dosage: 10 MEQ, QD
  23. HYDROXYZINE HYDROCHLORIDE [Concomitant]
     Dosage: UNK
     Dates: start: 20081206
  24. NAPROXEN SODIUM [Concomitant]
     Dosage: UNK
     Dates: start: 20090430
  25. ZOLPIDEM [Concomitant]
     Dosage: UNK
     Dates: start: 20091106, end: 20091206
  26. YASMIN [Suspect]
     Indication: ORAL CONTRACEPTION
     Dosage: UNK
     Dates: start: 20060614, end: 20060714
  27. NORETHINDRONE [Concomitant]
  28. HYDROCODONE BITARTRATE AND ACETAMINOPHEN [Concomitant]
  29. OXYCODONE HCL AND ACETAMINOPHEN [Concomitant]
     Dosage: UNK
     Dates: start: 20090622
  30. CYCLOBENZAPRINE [Concomitant]
  31. BUPIVACAINE HCL [Concomitant]
  32. MORPHINE [Concomitant]
  33. METHYLPREDNISOLONE [Concomitant]
  34. LEVSIN [Concomitant]
  35. YASMIN [Suspect]
     Dosage: UNK
     Dates: start: 20090701, end: 20100201
  36. PHENERGAN HCL [Concomitant]
  37. PROMETHAZINE [Concomitant]
  38. REGLAN [Concomitant]

REACTIONS (6)
  - GALLBLADDER DISORDER [None]
  - GALLBLADDER NON-FUNCTIONING [None]
  - CHOLELITHIASIS [None]
  - CHOLECYSTITIS [None]
  - PAIN [None]
  - INJURY [None]
